FAERS Safety Report 11929551 (Version 1)
Quarter: 2016Q1

REPORT INFORMATION
  Report Type: Spontaneous
  Country: US (occurrence: US)
  Receive Date: 20160120
  Receipt Date: 20160120
  Transmission Date: 20160526
  Serious: Yes (Other)
  Sender: FDA-Public Use
  Company Number: US-ASTRAZENECA-2016SE04275

PATIENT
  Age: 427 Month
  Sex: Female

DRUGS (3)
  1. IBRANCE [Suspect]
     Active Substance: PALBOCICLIB
     Indication: BREAST CANCER METASTATIC
     Route: 065
     Dates: start: 201507, end: 201511
  2. LUPRON [Suspect]
     Active Substance: LEUPROLIDE ACETATE
     Indication: BREAST CANCER METASTATIC
     Dosage: 1 SHOT MONTHLY
     Route: 065
     Dates: start: 201507
  3. FASLODEX [Suspect]
     Active Substance: FULVESTRANT
     Indication: BREAST CANCER METASTATIC
     Dosage: 5 SHOTS (2 DOSES MONTHLY)
     Route: 030
     Dates: start: 201507

REACTIONS (4)
  - Hepatic enzyme increased [Not Recovered/Not Resolved]
  - Neutrophil count decreased [Unknown]
  - Vomiting [Not Recovered/Not Resolved]
  - Liver disorder [Not Recovered/Not Resolved]

NARRATIVE: CASE EVENT DATE: 201508
